FAERS Safety Report 24463481 (Version 2)
Quarter: 2024Q4

REPORT INFORMATION
  Report Type: Spontaneous
  Country: US (occurrence: US)
  Receive Date: 20241018
  Receipt Date: 20241025
  Transmission Date: 20250115
  Serious: Yes (Death, Disabling)
  Sender: AMGEN
  Company Number: US-AMGEN-USASP2024203957

PATIENT
  Age: 70 Year
  Sex: Male

DRUGS (2)
  1. TAVNEOS [Suspect]
     Active Substance: AVACOPAN
     Indication: Granulomatosis with polyangiitis
     Dosage: 30 MILLIGRAM, BID (3 (10MG )CAPSULES TWICE A DAY)
     Route: 065
     Dates: start: 20240802
  2. TAVNEOS [Suspect]
     Active Substance: AVACOPAN
     Indication: Anti-neutrophil cytoplasmic antibody positive vasculitis

REACTIONS (5)
  - Death [Fatal]
  - Wheelchair user [Unknown]
  - Muscular weakness [Unknown]
  - Pain [Unknown]
  - Unevaluable event [Unknown]

NARRATIVE: CASE EVENT DATE: 20240101
